FAERS Safety Report 16861400 (Version 1)
Quarter: 2019Q3

REPORT INFORMATION
  Report Type: Spontaneous
  Country: US (occurrence: US)
  Receive Date: 20190806
  Receipt Date: 20190806
  Transmission Date: 20191005
  Serious: No
  Sender: FDA-Public Use
  Company Number: None

PATIENT
  Age: 73 Year
  Sex: Male

DRUGS (1)
  1. SUTENT [Suspect]
     Active Substance: SUNITINIB MALATE
     Indication: NEUROENDOCRINE TUMOUR
     Route: 048
     Dates: start: 20190705

REACTIONS (5)
  - Pyrexia [None]
  - Chills [None]
  - Therapy cessation [None]
  - Ageusia [None]
  - Muscle spasms [None]

NARRATIVE: CASE EVENT DATE: 20190731
